FAERS Safety Report 9186574 (Version 3)
Quarter: 2013Q2

REPORT INFORMATION
  Report Type: Spontaneous
  Country: US (occurrence: US)
  Receive Date: 20130325
  Receipt Date: 20130524
  Transmission Date: 20140414
  Serious: Yes (Other)
  Sender: FDA-Public Use
  Company Number: US-PFIZER INC-2013094628

PATIENT
  Age: 82 Year
  Sex: Male
  Weight: 112 kg

DRUGS (8)
  1. CELEBREX [Suspect]
     Indication: ARTHRALGIA
     Dosage: UNK
     Dates: start: 2009
  2. TOPROL XL [Concomitant]
     Dosage: 25 MG, 1X/DAY
  3. TYLENOL [Concomitant]
     Dosage: PRN
  4. VITAMIN E [Concomitant]
     Dosage: DAILY
  5. ASPIRIN [Concomitant]
     Dosage: 325 MG, 1X/DAY
  6. HCTZ [Concomitant]
     Dosage: 12.5 MG, 1X/DAY
  7. GLUCOSAMINE [Concomitant]
     Dosage: UNK
  8. POTASSIUM [Concomitant]
     Dosage: UNK

REACTIONS (1)
  - Renal failure [Unknown]
